FAERS Safety Report 12182447 (Version 2)
Quarter: 2016Q1

REPORT INFORMATION
  Report Type: Spontaneous
  Country: CL (occurrence: CL)
  Receive Date: 20160316
  Receipt Date: 20160324
  Transmission Date: 20160526
  Serious: Yes (Life-Threatening, Disabling)
  Sender: FDA-Public Use
  Company Number: CL-ASTRAZENECA-2016SE26088

PATIENT
  Age: 53 Year
  Sex: Male
  Weight: 92 kg

DRUGS (1)
  1. NEXIUM [Suspect]
     Active Substance: ESOMEPRAZOLE MAGNESIUM
     Indication: ABDOMINAL PAIN UPPER
     Route: 048
     Dates: start: 20160107

REACTIONS (2)
  - Metastatic gastric cancer [Not Recovered/Not Resolved]
  - Product use issue [Unknown]

NARRATIVE: CASE EVENT DATE: 20160218
